FAERS Safety Report 26004763 (Version 1)
Quarter: 2025Q4

REPORT INFORMATION
  Report Type: Spontaneous
  Country: US (occurrence: US)
  Receive Date: 20251106
  Receipt Date: 20251106
  Transmission Date: 20260117
  Serious: Yes (Hospitalization, Other)
  Sender: SANOFI AVENTIS
  Company Number: US-SA-2025SA326634

PATIENT
  Age: 69 Year
  Sex: Female

DRUGS (2)
  1. DUPIXENT [Suspect]
     Active Substance: DUPILUMAB
     Indication: Chronic obstructive pulmonary disease
     Dosage: 600 MG, 1X
     Route: 058
     Dates: start: 202509, end: 202509
  2. DUPIXENT [Suspect]
     Active Substance: DUPILUMAB
     Dosage: 300 MG, QOW
     Route: 058
     Dates: start: 2025

REACTIONS (8)
  - Pulmonary oedema [Unknown]
  - Dyspnoea [Unknown]
  - Chest discomfort [Unknown]
  - Abdominal distension [Unknown]
  - Weight decreased [Unknown]
  - Constipation [Recovered/Resolved]
  - Nasopharyngitis [Recovering/Resolving]
  - Eosinophil count increased [Unknown]

NARRATIVE: CASE EVENT DATE: 20250101
